FAERS Safety Report 8614840-6 (Version None)
Quarter: 2012Q3

REPORT INFORMATION
  Report Type: 
  Country: None (occurrence: None)
  Receive Date: 20120823
  Receipt Date: 20120820
  Transmission Date: 20120928
  Serious: Yes (Other)
  Sender: FDA-Public Use
  Company Number: NL-PFIZER INC-2012157580

PATIENT
  Age: 17 Year
  Sex: Female

DRUGS (5)
  1. MIRENA [Concomitant]
  2. CLOBAZAM [Concomitant]
     Indication: EPILEPSY
  3. KEPPRA [Concomitant]
     Dosage: 1000 MG, 2X/DAY
  4. TRILEPTAL [Concomitant]
     Dosage: 600 MG, 2X/DAY
  5. TRANEXAMIC ACID [Suspect]
     Dosage: 1500 MG, 3X/DAY

REACTIONS (1)
  - EPILEPSY [None]
